FAERS Safety Report 6160855-X (Version None)
Quarter: 2009Q2

REPORT INFORMATION
  Report Type: 
  Country: None (occurrence: None)
  Receive Date: 20090420
  Receipt Date: 20090410
  Transmission Date: 20091009
  Serious: Yes (Hospitalization)
  Sender: FDA-Public Use
  Company Number: FR-ABBOTT-09P-056-0568509-00

PATIENT
  Age: 75 Year
  Sex: Male

DRUGS (1)
  1. ENANTONE 30 MG [Suspect]
     Indication: PROSTATE CANCER
     Route: 058
     Dates: start: 20090402

REACTIONS (2)
  - INJECTION SITE OEDEMA [None]
  - SYNCOPE [None]
